FAERS Safety Report 9315089 (Version 17)
Quarter: 2014Q3

REPORT INFORMATION
  Report Type: Spontaneous
  Country: JP (occurrence: JP)
  Receive Date: 20130529
  Receipt Date: 20140729
  Transmission Date: 20150326
  Serious: Yes (Hospitalization, Other)
  Sender: FDA-Public Use
  Company Number: JP-CELGENEUS-087-21880-13053183

PATIENT
  Age: 66 Year
  Sex: Male
  Weight: 60.8 kg

DRUGS (87)
  1. LENADEX [Suspect]
     Active Substance: DEXAMETHASONE ACETATE
     Route: 041
     Dates: start: 20120829
  2. TEPRENONE [Concomitant]
     Active Substance: TEPRENONE
     Indication: PRODUCT USED FOR UNKNOWN INDICATION
     Route: 065
     Dates: start: 2000, end: 20120904
  3. FAMOTIDINE. [Concomitant]
     Active Substance: FAMOTIDINE
     Indication: PRODUCT USED FOR UNKNOWN INDICATION
     Route: 065
     Dates: start: 200704, end: 20120904
  4. RINDERON VG [Concomitant]
     Active Substance: BETAMETHASONE VALERATE\GENTAMICIN SULFATE
     Indication: PUSTULAR PSORIASIS
     Route: 065
     Dates: start: 20130517, end: 20140115
  5. ZINC OXIDE. [Concomitant]
     Active Substance: ZINC OXIDE
     Route: 061
     Dates: start: 201305
  6. HYDROCORTISONE BUTYRATE. [Concomitant]
     Active Substance: HYDROCORTISONE BUTYRATE
     Indication: ADVERSE EVENT
     Route: 065
     Dates: start: 20130517, end: 20130703
  7. HYDROCORTISONE BUTYRATE. [Concomitant]
     Active Substance: HYDROCORTISONE BUTYRATE
     Route: 065
     Dates: start: 20130704
  8. OXIGLUTATIONE [Concomitant]
     Indication: ADVERSE EVENT
     Route: 065
     Dates: start: 20140206, end: 20140206
  9. DICLOFENAC SODIUM. [Concomitant]
     Active Substance: DICLOFENAC SODIUM
     Route: 065
     Dates: start: 20140213, end: 20140323
  10. PHENYLEPHRINE HYDROCHLORIDE. [Concomitant]
     Active Substance: PHENYLEPHRINE HYDROCHLORIDE
     Indication: ADVERSE EVENT
     Route: 065
     Dates: start: 20140206, end: 20140206
  11. BETAMETHASONE SODIUM PHOSPHATE [Concomitant]
     Active Substance: BETAMETHASONE SODIUM PHOSPHATE
     Indication: ADVERSE EVENT
     Route: 065
     Dates: start: 20140207, end: 20140212
  12. ELOTUZUMAB [Suspect]
     Active Substance: ELOTUZUMAB
     Indication: PLASMA CELL MYELOMA
     Dosage: 10 MILLIGRAM/KILOGRAM
     Route: 041
     Dates: start: 20120829
  13. ALENDRONATE SODIUM HYDRATE [Concomitant]
     Active Substance: ALENDRONATE SODIUM
     Indication: PRODUCT USED FOR UNKNOWN INDICATION
     Route: 065
     Dates: start: 200701
  14. DIMETHYL ISOPROPYLAZULENE [Concomitant]
     Indication: PUSTULAR PSORIASIS
     Route: 065
     Dates: start: 2008, end: 20121014
  15. VALACYCLOVIR HCL [Concomitant]
     Active Substance: VALACYCLOVIR HYDROCHLORIDE
     Indication: PRODUCT USED FOR UNKNOWN INDICATION
     Route: 065
     Dates: start: 20120829
  16. MAGNESIUM OXIDE. [Concomitant]
     Active Substance: MAGNESIUM OXIDE
     Indication: ADVERSE EVENT
     Route: 065
     Dates: start: 20120905
  17. SOLDEM 3A [Concomitant]
     Active Substance: CARBOHYDRATES\POTASSIUM CHLORIDE\SODIUM CHLORIDE\SODIUM LACTATE
     Indication: ADVERSE EVENT
     Route: 065
     Dates: start: 20120828, end: 20120830
  18. MEROPENEM HYDRATE [Concomitant]
     Active Substance: MEROPENEM
     Indication: ADVERSE EVENT
     Route: 065
     Dates: start: 20121011, end: 20121023
  19. ACETAMINOPHEN. [Concomitant]
     Active Substance: ACETAMINOPHEN
     Indication: ADVERSE EVENT
     Route: 065
     Dates: start: 20121007, end: 20121012
  20. CEFAZOLIN SODIUM. [Concomitant]
     Active Substance: CEFAZOLIN SODIUM
     Indication: ADVERSE EVENT
     Route: 065
     Dates: start: 20130516, end: 20130528
  21. FUROSEMIDE. [Concomitant]
     Active Substance: FUROSEMIDE
     Indication: ADVERSE EVENT
     Route: 065
     Dates: start: 20120907, end: 20120911
  22. DICLOFENAC SODIUM. [Concomitant]
     Active Substance: DICLOFENAC SODIUM
     Indication: ADVERSE EVENT
     Route: 065
     Dates: start: 20140206, end: 20140212
  23. NIFEDIPINE. [Concomitant]
     Active Substance: NIFEDIPINE
     Indication: PRODUCT USED FOR UNKNOWN INDICATION
     Route: 065
     Dates: start: 200205, end: 20121012
  24. D-CHLORPHENIRAMINE MALEATE [Concomitant]
     Indication: PRODUCT USED FOR UNKNOWN INDICATION
     Route: 065
     Dates: start: 20120909, end: 20120909
  25. ZINC OXIDE. [Concomitant]
     Active Substance: ZINC OXIDE
     Route: 065
     Dates: start: 20130513, end: 20130515
  26. CEFTAZIDIME. [Concomitant]
     Active Substance: CEFTAZIDIME
     Indication: ADVERSE EVENT
     Route: 065
     Dates: start: 20121007, end: 20121011
  27. LENOGRASTIM [Concomitant]
     Active Substance: LENOGRASTIM
     Indication: ADVERSE EVENT
     Route: 065
     Dates: start: 20121012, end: 20121017
  28. CALCIUM POLYSTYRENE SULFONATE [Concomitant]
     Active Substance: CALCIUM POLYSTYRENE SULFONATE
     Indication: ADVERSE EVENT
     Route: 065
     Dates: start: 20120921, end: 20121005
  29. OXYCODONE HCL [Concomitant]
     Active Substance: OXYCODONE HYDROCHLORIDE
     Indication: ADVERSE EVENT
     Route: 065
     Dates: start: 20120917, end: 20131218
  30. NEW LECICARBON [Concomitant]
     Active Substance: SODIUM BICARBONATE\SODIUM PHOSPHATE, MONOBASIC
     Indication: ADVERSE EVENT
     Route: 065
     Dates: start: 20120907, end: 20121006
  31. POLYVINYL ALCOHOL IODINE SOLUTION [Concomitant]
     Indication: ADVERSE EVENT
     Route: 065
     Dates: start: 20140206, end: 20140206
  32. SILODOSIN [Concomitant]
     Active Substance: SILODOSIN
     Indication: ADVERSE EVENT
     Route: 065
     Dates: start: 20140129
  33. SOLDEM 1 [Concomitant]
     Indication: ADVERSE EVENT
     Route: 065
     Dates: start: 20121012, end: 20121018
  34. AMLODIPINE BESILATE [Concomitant]
     Active Substance: AMLODIPINE BESYLATE
     Indication: PRODUCT USED FOR UNKNOWN INDICATION
     Route: 065
     Dates: start: 20130110
  35. BACITRACIN FRADIOMICYN SULFATE [Concomitant]
     Indication: ADVERSE EVENT
     Route: 065
     Dates: start: 20130517, end: 20130522
  36. BROCIN-CODEINE [Concomitant]
     Indication: ADVERSE EVENT
     Route: 048
     Dates: start: 20120906, end: 20121011
  37. TOBRAMYCIN [Concomitant]
     Active Substance: TOBRAMYCIN
     Indication: ADVERSE EVENT
     Route: 065
     Dates: start: 20140206, end: 20140206
  38. ACETYLCHOLINE CHLORIDE [Concomitant]
     Active Substance: ACETYLCHOLINE CHLORIDE
     Indication: ADVERSE EVENT
     Route: 065
     Dates: start: 20140206, end: 20140206
  39. PHENYLEPHRINE HYDROCHLORIDE. [Concomitant]
     Active Substance: PHENYLEPHRINE HYDROCHLORIDE
     Indication: ADVERSE EVENT
     Route: 065
     Dates: start: 20140206, end: 20140212
  40. COLISTIN SODIUM METHANESULFONATE [Concomitant]
     Indication: ADVERSE EVENT
     Route: 065
     Dates: start: 20140206, end: 20140206
  41. SOLIFENACIN SUCCINATE [Concomitant]
     Active Substance: SOLIFENACIN SUCCINATE
     Indication: ADVERSE EVENT
     Route: 065
     Dates: start: 20140716
  42. REVLIMID [Suspect]
     Active Substance: LENALIDOMIDE
     Indication: PLASMA CELL MYELOMA
     Dosage: 10 MILLIGRAM
     Route: 048
     Dates: start: 20120829
  43. ETRETINATE [Concomitant]
     Active Substance: ETRETINATE
     Indication: PUSTULAR PSORIASIS
     Route: 065
     Dates: start: 20130517, end: 20140115
  44. ETRETINATE [Concomitant]
     Active Substance: ETRETINATE
     Route: 065
     Dates: start: 20140108, end: 20140115
  45. BROTIZOLAM [Concomitant]
     Active Substance: BROTIZOLAM
     Indication: PRODUCT USED FOR UNKNOWN INDICATION
     Route: 065
     Dates: start: 2002
  46. SODIUM PICOSULFATE HYDRATE [Concomitant]
     Indication: PRODUCT USED FOR UNKNOWN INDICATION
     Route: 065
     Dates: start: 20120904, end: 201301
  47. ISOTONIC SODIUM CHLORIDE SOLUTION [Concomitant]
     Active Substance: SODIUM CHLORIDE
     Indication: PRODUCT USED FOR UNKNOWN INDICATION
     Route: 065
     Dates: start: 20120921, end: 20120921
  48. ZINC OXIDE. [Concomitant]
     Active Substance: ZINC OXIDE
     Indication: ERYTHEMA
     Route: 065
     Dates: start: 20121015, end: 201211
  49. LEVOFLOXACIN HEMIHYDRATE [Concomitant]
     Active Substance: LEVOFLOXACIN
     Indication: ADVERSE EVENT
     Route: 065
     Dates: start: 20121024, end: 20121030
  50. LEVOFLOXACIN HEMIHYDRATE [Concomitant]
     Active Substance: LEVOFLOXACIN
     Route: 065
     Dates: start: 20140213, end: 20140323
  51. GENTAMICIN SULFATE [Concomitant]
     Active Substance: GENTAMICIN SULFATE
     Indication: ADVERSE EVENT
     Route: 065
     Dates: start: 20130529, end: 20140115
  52. GENTAMICIN SULFATE [Concomitant]
     Active Substance: GENTAMICIN SULFATE
     Route: 065
     Dates: start: 20140116
  53. TAMSULOSIN HYDROCHLORIDE. [Concomitant]
     Active Substance: TAMSULOSIN HYDROCHLORIDE
     Indication: ADVERSE EVENT
     Route: 048
     Dates: start: 20131219, end: 20140108
  54. ADRENALINE [Concomitant]
     Active Substance: EPINEPHRINE
     Indication: ADVERSE EVENT
     Route: 065
     Dates: start: 20140206, end: 20140206
  55. LENADEX [Suspect]
     Active Substance: DEXAMETHASONE ACETATE
     Indication: PLASMA CELL MYELOMA
     Dosage: 28 MILLIGRAM
     Route: 048
     Dates: start: 20120829, end: 20130516
  56. ETRETINATE [Concomitant]
     Active Substance: ETRETINATE
     Indication: ADVERSE EVENT
     Route: 065
     Dates: start: 2000, end: 20121005
  57. ETRETINATE [Concomitant]
     Active Substance: ETRETINATE
     Route: 065
     Dates: start: 20140116
  58. TEPRENONE [Concomitant]
     Active Substance: TEPRENONE
     Route: 065
     Dates: start: 20140206, end: 20140209
  59. CELECOXIB. [Concomitant]
     Active Substance: CELECOXIB
     Indication: PRODUCT USED FOR UNKNOWN INDICATION
     Route: 065
     Dates: start: 201104
  60. LIMAPROST ALFADEX [Concomitant]
     Active Substance: LIMAPROST
     Indication: PRODUCT USED FOR UNKNOWN INDICATION
     Route: 065
     Dates: start: 201101, end: 20120828
  61. FELBINAC [Concomitant]
     Active Substance: FELBINAC
     Indication: PRODUCT USED FOR UNKNOWN INDICATION
     Route: 065
     Dates: start: 201204
  62. DIMETHYL ISOPROPYLAZULENE [Concomitant]
     Indication: ADVERSE EVENT
     Route: 065
     Dates: start: 20130509, end: 20130515
  63. LEVOFLOXACIN HEMIHYDRATE [Concomitant]
     Active Substance: LEVOFLOXACIN
     Route: 065
     Dates: start: 20140203, end: 20140212
  64. GLYCERIN. [Concomitant]
     Active Substance: GLYCERIN
     Indication: ADVERSE EVENT
     Route: 065
     Dates: start: 20120906, end: 20121006
  65. LIDOCAINE HYDROCHLORIDE. [Concomitant]
     Active Substance: LIDOCAINE HYDROCHLORIDE
     Indication: ADVERSE EVENT
     Route: 065
     Dates: start: 20140206, end: 20140206
  66. ATROPINE SULFATE HYDRATE [Concomitant]
     Active Substance: ATROPINE SULFATE
     Indication: ADVERSE EVENT
     Route: 065
     Dates: start: 20140206, end: 20140206
  67. CEFCAPENE PIVOXIL HYDROCHLORIDE HYDRATE [Concomitant]
     Active Substance: CEFCAPENE PIVOXIL HYDROCHLORIDE HYDRATE
     Indication: PRODUCT USED FOR UNKNOWN INDICATION
     Route: 065
     Dates: start: 20140206, end: 20140209
  68. RINDERON VG [Concomitant]
     Active Substance: BETAMETHASONE VALERATE\GENTAMICIN SULFATE
     Indication: ADVERSE EVENT
     Route: 065
     Dates: start: 2001, end: 20121005
  69. RINDERON VG [Concomitant]
     Active Substance: BETAMETHASONE VALERATE\GENTAMICIN SULFATE
     Route: 065
     Dates: start: 20140116
  70. OMEPRAZOLE. [Concomitant]
     Active Substance: OMEPRAZOLE
     Indication: PRODUCT USED FOR UNKNOWN INDICATION
     Route: 065
     Dates: start: 20120829
  71. FLUCONAZOLE. [Concomitant]
     Active Substance: FLUCONAZOLE
     Indication: PRODUCT USED FOR UNKNOWN INDICATION
     Route: 065
     Dates: start: 20120829, end: 20120830
  72. VORICONAZOLE. [Concomitant]
     Active Substance: VORICONAZOLE
     Indication: PRODUCT USED FOR UNKNOWN INDICATION
     Route: 065
     Dates: start: 20120831, end: 20121107
  73. ACETAMINOPHEN. [Concomitant]
     Active Substance: ACETAMINOPHEN
     Route: 065
     Dates: start: 20130516, end: 20130525
  74. VANCOMYCIN HCL [Concomitant]
     Active Substance: VANCOMYCIN HYDROCHLORIDE
     Indication: ADVERSE EVENT
     Route: 065
     Dates: start: 20121012, end: 20121023
  75. PL COMBINATION GRANULE [Concomitant]
     Indication: ADVERSE EVENT
     Route: 065
     Dates: start: 20130227, end: 20130302
  76. PL COMBINATION GRANULE [Concomitant]
     Route: 065
     Dates: start: 20140715
  77. CALCIUM POLYSTYRENE SULFONATE [Concomitant]
     Active Substance: CALCIUM POLYSTYRENE SULFONATE
     Route: 065
     Dates: start: 20121016, end: 20121026
  78. VISCOAT [Concomitant]
     Indication: ADVERSE EVENT
     Route: 065
     Dates: start: 20140206, end: 20140206
  79. NO DRUG NAME [Concomitant]
     Route: 065
     Dates: start: 20140213, end: 20140323
  80. BETAMETHASONE SODIUM PHOSPHATE [Concomitant]
     Active Substance: BETAMETHASONE SODIUM PHOSPHATE
     Route: 065
     Dates: start: 20140213, end: 20140323
  81. LIDOCAINE HYDROCHLORIDE ADRENALINE COMBINATION [Concomitant]
     Indication: ADVERSE EVENT
     Route: 065
     Dates: start: 20140206, end: 20140206
  82. CEFDITOREN PIVOXIL. [Concomitant]
     Active Substance: CEFDITOREN PIVOXIL
     Indication: PRODUCT USED FOR UNKNOWN INDICATION
     Route: 065
     Dates: start: 20120815, end: 20120818
  83. SENNOSIDE A+B [Concomitant]
     Active Substance: SENNOSIDES A AND B
     Indication: PRODUCT USED FOR UNKNOWN INDICATION
     Route: 065
     Dates: start: 2007, end: 201301
  84. KETOPROFEN. [Concomitant]
     Active Substance: KETOPROFEN
     Indication: PRODUCT USED FOR UNKNOWN INDICATION
     Route: 065
     Dates: start: 201107, end: 201211
  85. BAKTAR [Concomitant]
     Active Substance: SULFAMETHOXAZOLE\TRIMETHOPRIM
     Indication: PRODUCT USED FOR UNKNOWN INDICATION
     Route: 048
     Dates: start: 20120829
  86. BUFFERIN [Concomitant]
     Active Substance: ASPIRIN
     Indication: PRODUCT USED FOR UNKNOWN INDICATION
     Route: 048
     Dates: start: 20120829
  87. PURIFIED SODIUM HYALURONATE [Concomitant]
     Indication: ADVERSE EVENT
     Route: 065
     Dates: start: 20140206, end: 20140206

REACTIONS (2)
  - Pustular psoriasis [Recovered/Resolved]
  - Cataract [Recovered/Resolved]

NARRATIVE: CASE EVENT DATE: 20130515
